FAERS Safety Report 7681449-0 (Version None)
Quarter: 2011Q3

REPORT INFORMATION
  Report Type: 
  Country: None (occurrence: None)
  Receive Date: 20110812
  Receipt Date: 20110728
  Transmission Date: 20111222
  Serious: Yes (Hospitalization)
  Sender: FDA-Public Use
  Company Number: FR-SANOFI-AVENTIS-2011SA048499

PATIENT
  Age: 77 Year
  Sex: Female
  Weight: 53 kg

DRUGS (6)
  1. ATORVASTATIN CALCIUM [Concomitant]
     Route: 048
  2. ASPIRIN [Concomitant]
     Route: 065
  3. LANTUS [Suspect]
     Indication: TYPE 1 DIABETES MELLITUS
     Route: 058
  4. HUMALOG [Suspect]
     Indication: TYPE 2 DIABETES MELLITUS
     Route: 058
     Dates: end: 20101212
  5. HUMALOG [Suspect]
     Route: 058
     Dates: start: 20101213, end: 20101213
  6. NOVORAPID [Concomitant]
     Indication: TYPE 1 DIABETES MELLITUS
     Route: 065

REACTIONS (4)
  - HYPOGLYCAEMIA [None]
  - FALL [None]
  - EYE INJURY [None]
  - LOSS OF CONSCIOUSNESS [None]
